FAERS Safety Report 23117076 (Version 1)
Quarter: 2023Q4

REPORT INFORMATION
  Report Type: Spontaneous
  Country: US (occurrence: US)
  Receive Date: 20231027
  Receipt Date: 20231027
  Transmission Date: 20240110
  Serious: No
  Sender: FDA-Public Use
  Company Number: US-UPSHER-SMITH LABORATORIES, LLC-2023USL00671

PATIENT
  Age: 23 Year
  Sex: Male
  Weight: 84.354 kg

DRUGS (2)
  1. ISOTRETINOIN [Suspect]
     Active Substance: ISOTRETINOIN
     Indication: Acne cystic
     Dosage: 40 MG, 2X/DAY
     Route: 048
     Dates: start: 20230607, end: 20230712
  2. UNSPECIFIED OTC ALLERGY MEDS [Concomitant]

REACTIONS (3)
  - Hypertriglyceridaemia [Unknown]
  - Blood cholesterol increased [Unknown]
  - High density lipoprotein decreased [Unknown]

NARRATIVE: CASE EVENT DATE: 20230705
